FAERS Safety Report 8993108 (Version 7)
Quarter: 2013Q2

REPORT INFORMATION
  Report Type: Report from Study
  Country: ES (occurrence: ES)
  Receive Date: 20130102
  Receipt Date: 20130627
  Transmission Date: 20140414
  Serious: Yes (Hospitalization, Other)
  Sender: FDA-Public Use
  Company Number: ES-BAXTER-2012BAX008944

PATIENT
  Age: 1 Year
  Sex: Female
  Weight: 13.3 kg

DRUGS (34)
  1. TRONOXAL 1G INYECTABLE [Suspect]
     Indication: NEOPLASM MALIGNANT
     Route: 042
     Dates: start: 20120222
  2. TRONOXAL 1G INYECTABLE [Suspect]
     Route: 042
     Dates: start: 20120503
  3. TRONOXAL 1G INYECTABLE [Suspect]
     Route: 042
     Dates: start: 20120524
  4. TRONOXAL 1G INYECTABLE [Suspect]
     Route: 042
     Dates: start: 20120705
  5. GENOXAL GRAGEAS [Suspect]
     Indication: NEOPLASM MALIGNANT
     Route: 048
     Dates: start: 20121003
  6. GENOXAL GRAGEAS [Suspect]
     Route: 048
     Dates: start: 20121220
  7. GENOXAL GRAGEAS [Suspect]
     Route: 048
     Dates: start: 20130424
  8. GENOXAL GRAGEAS [Suspect]
     Route: 048
     Dates: start: 20121003
  9. GENOXAL GRAGEAS [Suspect]
     Route: 048
     Dates: start: 20130514
  10. NAVELBINE [Suspect]
     Indication: NEOPLASM MALIGNANT
     Route: 042
     Dates: start: 20121003
  11. NAVELBINE [Suspect]
     Route: 042
     Dates: start: 20121212
  12. NAVELBINE [Suspect]
     Route: 042
     Dates: start: 20130424
  13. NAVELBINE [Suspect]
     Route: 042
     Dates: start: 20121003
  14. NAVELBINE [Suspect]
     Route: 065
     Dates: start: 20130503
  15. VINCRISTINE [Suspect]
     Indication: NEOPLASM MALIGNANT
     Route: 042
     Dates: start: 20120222
  16. VINCRISTINE [Suspect]
     Route: 042
     Dates: start: 20120502
  17. VINCRISTINE [Suspect]
     Route: 042
     Dates: start: 20120523
  18. VINCRISTINE [Suspect]
     Route: 042
     Dates: start: 20120704
  19. DOXORUBICIN [Suspect]
     Indication: NEOPLASM MALIGNANT
     Route: 042
     Dates: start: 20120222
  20. DOXORUBICIN [Suspect]
     Route: 042
     Dates: start: 20120223
  21. DOXORUBICIN [Suspect]
     Route: 042
     Dates: start: 20120315
  22. DOXORUBICIN [Suspect]
     Route: 042
     Dates: start: 20120503
  23. ACTINOMYCIN [Suspect]
     Indication: NEOPLASM MALIGNANT
     Route: 042
     Dates: start: 20120222
  24. ACTINOMYCIN [Suspect]
     Route: 042
     Dates: start: 20120314
  25. ACTINOMYCIN [Suspect]
     Route: 042
     Dates: start: 20120502
  26. ACTINOMYCIN [Suspect]
     Route: 042
     Dates: start: 20120523
  27. ACTINOMYCIN [Suspect]
     Route: 042
     Dates: start: 20120704
  28. BEVACIZUMAB [Suspect]
     Indication: NEOPLASM MALIGNANT
     Route: 042
     Dates: start: 20120314
  29. BEVACIZUMAB [Suspect]
     Route: 042
     Dates: start: 20120410
  30. BEVACIZUMAB [Suspect]
     Route: 042
     Dates: start: 20130417
  31. BEVACIZUMAB [Suspect]
     Route: 042
     Dates: start: 20120523
  32. BEVACIZUMAB [Suspect]
     Route: 042
     Dates: start: 20121212
  33. BEVACIZUMAB [Suspect]
     Route: 042
     Dates: start: 20130314
  34. BEVACIZUMAB [Suspect]
     Route: 042
     Dates: start: 20130503

REACTIONS (7)
  - Febrile neutropenia [Recovered/Resolved]
  - Febrile neutropenia [Recovered/Resolved]
  - Pseudomonas infection [Recovered/Resolved]
  - Febrile neutropenia [Recovered/Resolved]
  - Pyrexia [Recovered/Resolved]
  - Febrile neutropenia [Recovered/Resolved]
  - Herpes zoster [Recovered/Resolved]
